FAERS Safety Report 4681847-3 (Version None)
Quarter: 2005Q2

REPORT INFORMATION
  Report Type: 
  Country: None (occurrence: None)
  Receive Date: 20050602
  Receipt Date: 20050520
  Transmission Date: 20051028
  Serious: Yes (Hospitalization)
  Sender: FDA-Public Use
  Company Number: 2005077588

PATIENT
  Age: 57 Year
  Sex: Male

DRUGS (1)
  1. VIAGRA [Suspect]
     Dosage: (2 M)

REACTIONS (3)
  - BLOOD CHOLESTEROL INCREASED [None]
  - CARDIAC FIBRILLATION [None]
  - MYOCARDIAL INFARCTION [None]
